FAERS Safety Report 8982443 (Version 1)
Quarter: 2012Q4

REPORT INFORMATION
  Report Type: 
  Country: US (occurrence: US)
  Receive Date: 20121222
  Receipt Date: 20121222
  Transmission Date: 20130627
  Serious: No
  Sender: FDA-Public Use
  Company Number: US-ASTRAZENECA-2012SE88227

PATIENT
  Age: 63 Year
  Sex: Female

DRUGS (3)
  1. TOPROL XL [Suspect]
     Route: 048
  2. CRESTOR [Suspect]
     Dosage: TAKING CRESTOR DAILY
     Route: 048
  3. CRESTOR [Suspect]
     Dosage: THREE TIMES A WEEK
     Route: 048

REACTIONS (4)
  - Hypertension [Unknown]
  - Arthralgia [Unknown]
  - Intentional drug misuse [Unknown]
  - Drug ineffective [Unknown]
